FAERS Safety Report 23028057 (Version 1)
Quarter: 2023Q4

REPORT INFORMATION
  Report Type: Spontaneous
  Country: CA (occurrence: CA)
  Receive Date: 20231004
  Receipt Date: 20231004
  Transmission Date: 20240110
  Serious: Yes (Other)
  Sender: FDA-Public Use
  Company Number: CA-PFIZER INC-202300248412

PATIENT
  Age: 48 Year
  Sex: Female

DRUGS (1)
  1. RUXIENCE [Suspect]
     Active Substance: RITUXIMAB-PVVR
     Indication: Multiple sclerosis
     Dosage: 1000 MG, DAY 1 AND DAY 15 THEN 1000MG EVERY 6 MONTHS
     Route: 042
     Dates: start: 20230922

REACTIONS (6)
  - Feeling hot [Recovered/Resolved]
  - Pruritus [Recovered/Resolved]
  - Ear pruritus [Recovered/Resolved]
  - Oropharyngeal pain [Recovering/Resolving]
  - Condition aggravated [Recovering/Resolving]
  - Off label use [Unknown]

NARRATIVE: CASE EVENT DATE: 20230922
